FAERS Safety Report 26157176 (Version 1)
Quarter: 2025Q4

REPORT INFORMATION
  Report Type: Report from Study
  Country: GB (occurrence: GB)
  Receive Date: 20251215
  Receipt Date: 20251215
  Transmission Date: 20260118
  Serious: Yes (Other)
  Sender: TEVA
  Company Number: GB-TEVA-VS-3402212

PATIENT
  Age: 80 Year

DRUGS (1)
  1. TERIPARATIDE [Suspect]
     Active Substance: TERIPARATIDE
     Indication: Osteoporosis
     Route: 058
     Dates: start: 20250925, end: 20251128

REACTIONS (9)
  - Nephrolithiasis [Unknown]
  - Tooth injury [Unknown]
  - Pain in extremity [Unknown]
  - Hypokinesia [Unknown]
  - Back pain [Unknown]
  - Hiatus hernia [Unknown]
  - Muscle spasms [Unknown]
  - Bone disorder [Unknown]
  - Malaise [Unknown]

NARRATIVE: CASE EVENT DATE: 20250101
